FAERS Safety Report 6330838-5 (Version None)
Quarter: 2009Q3

REPORT INFORMATION
  Report Type: 
  Country: None (occurrence: None)
  Receive Date: 20090827
  Receipt Date: 20090820
  Transmission Date: 20100115
  Serious: Yes (Hospitalization, Disabling)
  Sender: FDA-Public Use
  Company Number: US-ROXANE LABORATORIES, INC.-2009-RO-00857RO

PATIENT
  Age: 56 Year
  Sex: Female

DRUGS (3)
  1. METHADONE [Suspect]
  2. FENTANYL [Suspect]
  3. BENZODIAZEPINES [Suspect]

REACTIONS (4)
  - LEUKOENCEPHALOPATHY [None]
  - MULTIPLE DRUG OVERDOSE INTENTIONAL [None]
  - RENAL FAILURE ACUTE [None]
  - RHABDOMYOLYSIS [None]
